FAERS Safety Report 8967284 (Version 1)
Quarter: 2012Q4

REPORT INFORMATION
  Report Type: Report from Study
  Country: US (occurrence: US)
  Receive Date: 20121217
  Receipt Date: 20121217
  Transmission Date: 20130627
  Serious: Yes (Hospitalization)
  Sender: FDA-Public Use
  Company Number: US-JNJFOC-20121204583

PATIENT
  Sex: Male
  Weight: 41.7 kg

DRUGS (7)
  1. REMICADE [Suspect]
     Indication: CROHN^S DISEASE
     Route: 042
     Dates: start: 20110907
  2. REMICADE [Suspect]
     Indication: CROHN^S DISEASE
     Route: 042
     Dates: start: 20120720
  3. PRENATAL VITAMIN [Concomitant]
  4. CLARITIN [Concomitant]
  5. ALBUTEROL [Concomitant]
  6. FLUTICASONE [Concomitant]
  7. BUDESONIDE [Concomitant]

REACTIONS (2)
  - Crohn^s disease [Recovered/Resolved]
  - Ileal stenosis [Recovered/Resolved]
